FAERS Safety Report 4281758-1 (Version None)
Quarter: 2004Q1

REPORT INFORMATION
  Report Type: 
  Country: None (occurrence: None)
  Receive Date: 20040128
  Receipt Date: 20040113
  Transmission Date: 20041129
  Serious: Yes (Hospitalization)
  Sender: FDA-Public Use
  Company Number: S04-CAN-00128-01

PATIENT
  Age: 28 Year
  Sex: Female

DRUGS (5)
  1. CELEXA [Suspect]
     Dosage: 20 MG QD PO
     Route: 048
     Dates: start: 19980101, end: 20030201
  2. CELEXA [Suspect]
     Dosage: 20 MG QD PO
     Route: 048
     Dates: start: 20030101, end: 20030101
  3. CELEXA [Suspect]
     Dosage: 10 MG QD PO
     Route: 048
     Dates: start: 20030101, end: 20030101
  4. CELEXA [Suspect]
     Dosage: 5 MG QD PO
     Route: 048
     Dates: start: 20030101
  5. EFFEXOR [Concomitant]

REACTIONS (16)
  - AGITATION [None]
  - ANGER [None]
  - BALANCE DISORDER [None]
  - BIPOLAR DISORDER [None]
  - DIFFICULTY IN WALKING [None]
  - DROOLING [None]
  - DRUG INEFFECTIVE [None]
  - DRUG WITHDRAWAL SYNDROME [None]
  - HEADACHE [None]
  - INDIFFERENCE [None]
  - LOSS OF LIBIDO [None]
  - MENTAL DISORDER [None]
  - NAUSEA [None]
  - SENSORY DISTURBANCE [None]
  - SUICIDAL IDEATION [None]
  - VISUAL DISTURBANCE [None]
